FAERS Safety Report 8344447-X (Version None)
Quarter: 2012Q2

REPORT INFORMATION
  Report Type: 
  Country: None (occurrence: None)
  Receive Date: 20120508
  Receipt Date: 20120502
  Transmission Date: 20120825
  Serious: Yes (Hospitalization)
  Sender: FDA-Public Use
  Company Number: BR-ABBOTT-12P-020-0932087-00

PATIENT
  Sex: Female

DRUGS (1)
  1. HUMIRA [Suspect]
     Indication: RHEUMATOID ARTHRITIS

REACTIONS (6)
  - PNEUMONIA [None]
  - DYSSTASIA [None]
  - IMMUNODEFICIENCY [None]
  - PYREXIA [None]
  - BLOOD GLUCOSE INCREASED [None]
  - ASTHENIA [None]
